FAERS Safety Report 7155577-2 (Version None)
Quarter: 2010Q4

REPORT INFORMATION
  Report Type: 
  Country: None (occurrence: None)
  Receive Date: 20101214
  Receipt Date: 20091116
  Transmission Date: 20110411
  Serious: No
  Sender: FDA-Public Use
  Company Number: US-AMGEN-KDL374756

PATIENT

DRUGS (12)
  1. ENBREL [Suspect]
     Dosage: 50 MG, QWK
     Route: 058
  2. INSULIN LISPRO [Concomitant]
     Dosage: UNK UNK, UNK
  3. FENOFIBRATE [Concomitant]
  4. INSULIN GLARGINE [Concomitant]
  5. OMEPRAZOLE [Concomitant]
  6. ERGOCALCIFEROL [Concomitant]
  7. ACETYLSALICYLIC ACID [Concomitant]
  8. EZETIMIBE [Concomitant]
  9. BISACODYL [Concomitant]
  10. GLYCERYL TRINITRATE [Concomitant]
  11. DEXTROPROPOXYPHENE HYDROCHLORIDE [Concomitant]
  12. ETODOLAC [Concomitant]

REACTIONS (2)
  - INJECTION SITE PAIN [None]
  - PRURITUS [None]
